FAERS Safety Report 6880748-X (Version None)
Quarter: 2010Q3

REPORT INFORMATION
  Report Type: 
  Country: None (occurrence: None)
  Receive Date: 20100728
  Receipt Date: 20100721
  Transmission Date: 20110219
  Serious: Yes (Death, Other)
  Sender: FDA-Public Use
  Company Number: JP-BAYER-200914168BYL

PATIENT
  Age: 79 Year
  Sex: Male
  Weight: 49 kg

DRUGS (17)
  1. NEXAVAR [Suspect]
     Indication: HEPATIC NEOPLASM MALIGNANT
     Dosage: UNIT DOSE: 200 MG
     Route: 048
     Dates: start: 20090804, end: 20090819
  2. NEXAVAR [Suspect]
     Dosage: TOTAL DAILY DOSE: 400 MG  UNIT DOSE: 200 MG
     Route: 048
     Dates: start: 20091007, end: 20091021
  3. RENIVACE [Concomitant]
     Dosage: SINCE BEFORE ADMINISTRATION
     Route: 048
     Dates: end: 20091001
  4. JUVELA [Concomitant]
     Dosage: SINCE BEFORE ADMINISTRATION
     Route: 048
     Dates: end: 20091001
  5. MUCODYNE [Concomitant]
     Indication: COUGH
     Dosage: SINCE BEFORE ADMINISTRATION
     Route: 048
     Dates: end: 20091001
  6. ALESION [Concomitant]
     Indication: RHINITIS ALLERGIC
     Dosage: SINCE BEFORE ADMINISTRATION
     Route: 048
     Dates: end: 20091001
  7. SPIRIVA [Concomitant]
     Indication: CHRONIC OBSTRUCTIVE PULMONARY DISEASE
     Dosage: SINCE BEFORE ADMINISTRATION
     Route: 055
     Dates: end: 20091001
  8. ALDACTONE [Concomitant]
     Indication: OEDEMA
     Route: 048
     Dates: start: 20090725
  9. TAKEPRON [Concomitant]
     Indication: GASTRITIS PROPHYLAXIS
     Route: 048
     Dates: start: 20090801, end: 20091028
  10. LOXONIN [Concomitant]
     Indication: PAIN
     Route: 048
     Dates: start: 20090804, end: 20091028
  11. SELBEX [Concomitant]
     Indication: PROPHYLAXIS AGAINST GASTROINTESTINAL ULCER
     Route: 048
     Dates: start: 20090804, end: 20091028
  12. ST1 [Concomitant]
     Indication: FLUID REPLACEMENT
     Route: 042
     Dates: start: 20091025, end: 20091028
  13. VITANEURIN [Concomitant]
     Indication: VITAMIN SUPPLEMENTATION
     Route: 042
     Dates: start: 20091025, end: 20091028
  14. ASCORBIC ACID [Concomitant]
     Indication: VITAMIN SUPPLEMENTATION
     Route: 042
     Dates: start: 20091025, end: 20091028
  15. NOVAMIN [Concomitant]
     Indication: PROPHYLAXIS OF NAUSEA AND VOMITING
     Route: 048
     Dates: start: 20091028, end: 20091028
  16. OXYCONTIN [Concomitant]
     Route: 048
     Dates: start: 20091024, end: 20091028
  17. OXINORM [Concomitant]
     Route: 048
     Dates: start: 20091024, end: 20091028

REACTIONS (10)
  - CONSTIPATION [None]
  - ENCEPHALOPATHY [None]
  - HEPATIC FUNCTION ABNORMAL [None]
  - HEPATIC NEOPLASM MALIGNANT [None]
  - HYPOPHAGIA [None]
  - INFECTION [None]
  - MALIGNANT NEOPLASM PROGRESSION [None]
  - PAIN [None]
  - PALMAR-PLANTAR ERYTHRODYSAESTHESIA SYNDROME [None]
  - SKIN DISORDER [None]
